FAERS Safety Report 9223802 (Version 6)
Quarter: 2014Q2

REPORT INFORMATION
  Report Type: Spontaneous
  Country: US (occurrence: US)
  Receive Date: 20130410
  Receipt Date: 20140414
  Transmission Date: 20141212
  Serious: Yes (Death, Hospitalization)
  Sender: FDA-Public Use
  Company Number: US-B.I. PHARMACEUTICALS,INC./RIDGEFIELD-2013-BI-09683BP

PATIENT
  Age: 85 Year
  Sex: Male
  Weight: 90.72 kg

DRUGS (6)
  1. PRADAXA [Suspect]
     Indication: ATRIAL FIBRILLATION
     Dosage: 300 MG
     Route: 048
     Dates: start: 20111108, end: 20111128
  2. ZOCOR [Concomitant]
     Dosage: 20 MG
     Route: 048
  3. DIGOXIN [Concomitant]
     Dosage: 125 MCG
     Route: 048
  4. MULTIVITAMIN [Concomitant]
     Route: 048
  5. ENALAPRIL MALEATE [Concomitant]
     Dosage: 20 MG
     Route: 048
  6. FLOMAX SR [Concomitant]
     Dosage: 0.4 MG
     Route: 048

REACTIONS (7)
  - Sudden death [Fatal]
  - Gastrointestinal haemorrhage [Unknown]
  - Rectal haemorrhage [Unknown]
  - Cardiac failure congestive [Unknown]
  - Fluid overload [Unknown]
  - Renal failure acute [Unknown]
  - Haemorrhagic anaemia [Unknown]
